FAERS Safety Report 5850637-8 (Version None)
Quarter: 2008Q3

REPORT INFORMATION
  Report Type: 
  Country: None (occurrence: None)
  Receive Date: 20080820
  Receipt Date: 20080616
  Transmission Date: 20090109
  Serious: No
  Sender: FDA-Public Use
  Company Number: IT-KINGPHARMUSA00001-K200800685

PATIENT

DRUGS (1)
  1. MORPHINE [Suspect]
     Dosage: UNK, SINGLE
     Dates: start: 20080606, end: 20080606

REACTIONS (5)
  - ACCIDENTAL EXPOSURE [None]
  - EXPIRED DRUG ADMINISTERED [None]
  - FLUSHING [None]
  - OEDEMA PERIPHERAL [None]
  - SEDATION [None]
